FAERS Safety Report 8821625 (Version 1)
Quarter: 2012Q4

REPORT INFORMATION
  Report Type: 
  Country: FR (occurrence: US)
  Receive Date: 20121002
  Receipt Date: 20121002
  Transmission Date: 20130627
  Serious: Yes (Other)
  Sender: FDA-Public Use
  Company Number: US-009507513-1101USA00186

PATIENT
  Sex: Female

DRUGS (5)
  1. JANUVIA [Suspect]
     Route: 048
  2. AMARYL [Suspect]
  3. METFORMIN [Suspect]
  4. LANTUS [Suspect]
     Dosage: 50 units, UNK
     Route: 058
  5. GLYBURIDE [Suspect]

REACTIONS (5)
  - Blood glucose increased [Unknown]
  - Foot fracture [Unknown]
  - Hyperhidrosis [Unknown]
  - Hypoglycaemia [Unknown]
  - Tremor [Unknown]
